FAERS Safety Report 19509746 (Version 33)
Quarter: 2025Q2

REPORT INFORMATION
  Report Type: Report from Study
  Country: US (occurrence: US)
  Receive Date: 20210708
  Receipt Date: 20250625
  Transmission Date: 20250716
  Serious: Yes (Other)
  Sender: TAKEDA
  Company Number: US-TAKEDA-US202018900

PATIENT
  Age: 77 Year
  Sex: Female
  Weight: 75 kg

DRUGS (51)
  1. LANADELUMAB [Suspect]
     Active Substance: LANADELUMAB
     Indication: Immune system disorder
     Dosage: 300 MILLIGRAM, Q2WEEKS
     Dates: start: 20190329
  2. LANADELUMAB [Suspect]
     Active Substance: LANADELUMAB
     Dosage: 300 MILLIGRAM, Q2WEEKS
  3. LANADELUMAB [Suspect]
     Active Substance: LANADELUMAB
  4. FIRAZYR [Suspect]
     Active Substance: ICATIBANT ACETATE
     Indication: Immune system disorder
  5. FIRAZYR [Suspect]
     Active Substance: ICATIBANT ACETATE
  6. MIRTAZAPINE [Suspect]
     Active Substance: MIRTAZAPINE
     Indication: Product used for unknown indication
  7. CREON [Suspect]
     Active Substance: PANCRELIPASE AMYLASE\PANCRELIPASE LIPASE\PANCRELIPASE PROTEASE
     Indication: Product used for unknown indication
  8. GABAPENTIN [Concomitant]
     Active Substance: GABAPENTIN
  9. TRAMADOL HCL [Concomitant]
     Active Substance: TRAMADOL HYDROCHLORIDE
  10. ASPIRIN [Concomitant]
     Active Substance: ASPIRIN
  11. DOCUSATE SODIUM [Concomitant]
     Active Substance: DOCUSATE SODIUM
  12. SYSTANE (HYPROMELLOSE 2910 (4000 MPA.S)) [Concomitant]
     Active Substance: HYPROMELLOSE 2910 (4000 MPA.S)
  13. Amlodipine + atorvastatin [Concomitant]
  14. COREG [Concomitant]
     Active Substance: CARVEDILOL
  15. ZANTAC [Concomitant]
     Active Substance: RANITIDINE HYDROCHLORIDE
  16. CLONIDINE HYDROCHLORIDE [Concomitant]
     Active Substance: CLONIDINE HYDROCHLORIDE
  17. BUSPIRONE [Concomitant]
     Active Substance: BUSPIRONE HYDROCHLORIDE
  18. PLAVIX [Concomitant]
     Active Substance: CLOPIDOGREL BISULFATE
  19. LEXAPRO [Concomitant]
     Active Substance: ESCITALOPRAM OXALATE
  20. METFORMIN [Concomitant]
     Active Substance: METFORMIN HYDROCHLORIDE
  21. HYDROCHLOROTHIAZIDE [Concomitant]
     Active Substance: HYDROCHLOROTHIAZIDE
  22. DANAZOL [Concomitant]
     Active Substance: DANAZOL
  23. CALCIUM [Concomitant]
     Active Substance: CALCIUM
  24. ATORVASTATIN [Concomitant]
     Active Substance: ATORVASTATIN
  25. CALCIUM [Concomitant]
     Active Substance: CALCIUM
  26. HYDROCHLOROTHIAZIDE [Concomitant]
     Active Substance: HYDROCHLOROTHIAZIDE
  27. PANTOPRAZOLE [Concomitant]
     Active Substance: PANTOPRAZOLE
  28. OYSTER SHELL [Concomitant]
     Active Substance: OSTREA EDULIS SHELL
  29. BUSPIRONE HCL [Concomitant]
     Active Substance: BUSPIRONE HYDROCHLORIDE
  30. METFORMIN HYDROCHLORIDE [Concomitant]
     Active Substance: METFORMIN HYDROCHLORIDE
  31. PANTOPRAZOLE SODIUM [Concomitant]
     Active Substance: PANTOPRAZOLE SODIUM
  32. Nepafenac;Prednisolone [Concomitant]
  33. KETOROLAC TROMETHAMINE [Concomitant]
     Active Substance: KETOROLAC TROMETHAMINE
  34. LOPERAMIDE [Concomitant]
     Active Substance: LOPERAMIDE
  35. TYLENOL [Concomitant]
     Active Substance: ACETAMINOPHEN
  36. COLACE [Concomitant]
     Active Substance: DOCUSATE SODIUM
  37. AMLODIPINE BESYLATE [Concomitant]
     Active Substance: AMLODIPINE BESYLATE
  38. AMLODIPINE [Concomitant]
     Active Substance: AMLODIPINE BESYLATE
  39. KETOROLAC [Concomitant]
     Active Substance: KETOROLAC TROMETHAMINE
  40. TRAMADOL [Concomitant]
     Active Substance: TRAMADOL
  41. XIFAXAN [Concomitant]
     Active Substance: RIFAXIMIN
  42. VENLAFAXINE HCL [Concomitant]
     Active Substance: VENLAFAXINE HYDROCHLORIDE
  43. MIRALAX [Concomitant]
     Active Substance: POLYETHYLENE GLYCOL 3350
  44. DICYCLOMINE [Concomitant]
     Active Substance: DICYCLOMINE HYDROCHLORIDE
  45. NARCAN [Concomitant]
     Active Substance: NALOXONE HYDROCHLORIDE
  46. CALCIUM\VITAMIN D [Concomitant]
     Active Substance: CALCIUM\VITAMIN D
  47. CLONIDINE [Concomitant]
     Active Substance: CLONIDINE
  48. CARVEDILOL [Concomitant]
     Active Substance: CARVEDILOL
  49. NORTRIPTYLINE [Concomitant]
     Active Substance: NORTRIPTYLINE
  50. TRETINOIN [Concomitant]
     Active Substance: TRETINOIN
  51. ZYRTEC [Concomitant]
     Active Substance: CETIRIZINE HYDROCHLORIDE

REACTIONS (29)
  - Skin cancer [Unknown]
  - Type 2 diabetes mellitus [Unknown]
  - Neuropathy peripheral [Unknown]
  - Dementia Alzheimer^s type [Unknown]
  - Cardiac disorder [Unknown]
  - Infusion site bruising [Unknown]
  - Vision blurred [Unknown]
  - Infusion site discomfort [Unknown]
  - Injection site urticaria [Unknown]
  - Viral infection [Recovering/Resolving]
  - Illness [Unknown]
  - Cough [Unknown]
  - Infusion site pruritus [Unknown]
  - Abdominal pain lower [Unknown]
  - Flatulence [Unknown]
  - Infusion site pain [Unknown]
  - Herpes zoster [Recovering/Resolving]
  - Feeling hot [Unknown]
  - Urticaria [Unknown]
  - Pruritus [Unknown]
  - Infusion related reaction [Unknown]
  - Product distribution issue [Unknown]
  - Diarrhoea [Unknown]
  - Upper respiratory tract infection [Unknown]
  - Headache [Unknown]
  - Injection site swelling [Unknown]
  - Hereditary angioedema [Unknown]
  - Injection site pain [Unknown]
  - Injection site erythema [Unknown]

NARRATIVE: CASE EVENT DATE: 20240108
